FAERS Safety Report 4640373-8 (Version None)
Quarter: 2005Q2

REPORT INFORMATION
  Report Type: 
  Country: None (occurrence: None)
  Receive Date: 20050420
  Receipt Date: 20050208
  Transmission Date: 20051028
  Serious: Yes (Hospitalization)
  Sender: FDA-Public Use
  Company Number: US-GLAXOSMITHKLINE-A0544473A

PATIENT
  Sex: Male
  Weight: 100 kg

DRUGS (7)
  1. TUMS E-X TABLETS [Suspect]
     Indication: DYSPEPSIA
     Route: 048
  2. NEXIUM [Concomitant]
     Indication: GASTROOESOPHAGEAL REFLUX DISEASE
  3. NORVASC [Concomitant]
     Indication: HYPERTENSION
     Route: 048
  4. PRILOSEC [Concomitant]
     Indication: GASTROOESOPHAGEAL REFLUX DISEASE
  5. PREVACID [Concomitant]
     Indication: GASTROOESOPHAGEAL REFLUX DISEASE
  6. ANTACID TAB [Concomitant]
     Indication: GASTROOESOPHAGEAL REFLUX DISEASE
  7. NORVASC [Concomitant]
     Dates: start: 20020101

REACTIONS (3)
  - DYSPEPSIA [None]
  - GASTROOESOPHAGEAL REFLUX DISEASE [None]
  - NEPHROLITHIASIS [None]
